FAERS Safety Report 17684442 (Version 1)
Quarter: 2020Q2

REPORT INFORMATION
  Report Type: Spontaneous
  Country: US (occurrence: US)
  Receive Date: 20200420
  Receipt Date: 20200420
  Transmission Date: 20200714
  Serious: Yes (Other)
  Sender: FDA-Public Use
  Company Number: US-BECTON DICKINSON-2020BDN00123

PATIENT

DRUGS (3)
  1. CHLORAPREP [Suspect]
     Active Substance: CHLORHEXIDINE GLUCONATE\ISOPROPYL ALCOHOL
     Indication: INFECTION PROPHYLAXIS
     Route: 061
  2. DOT PG PRO 20G 10CM RT [DEVICE] [Suspect]
     Active Substance: DEVICE
  3. BIOPATCH DRESSING W/CHG [Suspect]
     Active Substance: CHLORHEXIDINE GLUCONATE
     Dosage: 1^ DISK, 4 MM OPENING

REACTIONS (3)
  - Device physical property issue [Unknown]
  - Foreign body [Unknown]
  - Complication of device insertion [Unknown]
